FAERS Safety Report 10047535 (Version 1)
Quarter: 2014Q1

REPORT INFORMATION
  Report Type: Spontaneous
  Country: US (occurrence: None)
  Receive Date: 20140327
  Receipt Date: 20140327
  Transmission Date: 20141002
  Serious: Yes (Other)
  Sender: FDA-Public Use
  Company Number: 2014AP002239

PATIENT
  Age: 29 Year
  Sex: Female

DRUGS (6)
  1. MYCOPHENOLATE MOFETIL [Suspect]
     Indication: NEPHROPATHY
     Dates: start: 200704
  2. PREDNISONE [Suspect]
     Indication: PAIN
  3. PREDNISONE [Suspect]
     Indication: JOINT SWELLING
  4. LEFLUNOMIDE [Concomitant]
  5. PLAQUENIL [Concomitant]
  6. METHOTRESATE [Concomitant]

REACTIONS (2)
  - Lupus nephritis [None]
  - Glomerulonephritis proliferative [None]
